FAERS Safety Report 8768548 (Version 1)
Quarter: 2012Q4

REPORT INFORMATION
  Report Type: 
  Country: US (occurrence: US)
  Receive Date: 20120904
  Receipt Date: 20120904
  Transmission Date: 20130627
  Serious: No
  Sender: FDA-Public Use
  Company Number: US-AMGEN-USASP2012026806

PATIENT
  Age: 35 Year
  Sex: Female

DRUGS (2)
  1. ENBREL [Suspect]
     Indication: RHEUMATOID ARTHRITIS
     Dosage: 50 mg, qwk
     Route: 058
     Dates: start: 20090202
  2. PRENATAL VITAMINS                  /02014401/ [Concomitant]
     Dosage: UNK UNK, qd
     Dates: start: 201104

REACTIONS (2)
  - Pregnancy [Recovered/Resolved]
  - Rheumatoid arthritis [Unknown]
